FAERS Safety Report 9631249 (Version 1)
Quarter: 2013Q4

REPORT INFORMATION
  Report Type: Spontaneous
  Country: US (occurrence: None)
  Receive Date: 20131017
  Receipt Date: 20131017
  Transmission Date: 20140711
  Serious: Yes (Other)
  Sender: FDA-Public Use
  Company Number: None

PATIENT
  Age: 64 Year
  Sex: Male
  Weight: 127.3 kg

DRUGS (1)
  1. CYMBALTA [Suspect]
     Indication: PAIN
     Route: 048
     Dates: start: 20130708, end: 201309

REACTIONS (2)
  - Diarrhoea [None]
  - Skin fissures [None]
